FAERS Safety Report 25831730 (Version 1)
Quarter: 2025Q3

REPORT INFORMATION
  Report Type: Spontaneous
  Country: EU (occurrence: EU)
  Receive Date: 20250922
  Receipt Date: 20250922
  Transmission Date: 20251020
  Serious: Yes (Hospitalization)
  Sender: NOVO NORDISK
  Company Number: None

PATIENT
  Age: 74 Year
  Sex: Male

DRUGS (1)
  1. OZEMPIC [Suspect]
     Active Substance: SEMAGLUTIDE
     Indication: Type 2 diabetes mellitus
     Dosage: 1 MG, QW
     Route: 058
     Dates: start: 2018, end: 20250826

REACTIONS (1)
  - Adenocarcinoma pancreas [Recovered/Resolved]

NARRATIVE: CASE EVENT DATE: 20250501
